FAERS Safety Report 7080612-X (Version None)
Quarter: 2010Q4

REPORT INFORMATION
  Report Type: 
  Country: None (occurrence: None)
  Receive Date: 20101103
  Receipt Date: 20101025
  Transmission Date: 20110411
  Serious: Yes (Hospitalization)
  Sender: FDA-Public Use
  Company Number: KR-ASTRAZENECA-2010SE50607

PATIENT
  Age: 27733 Day
  Sex: Male

DRUGS (9)
  1. CRESTOR [Suspect]
     Indication: HYPERLIPIDAEMIA
     Route: 048
     Dates: start: 20050607
  2. HERBEN [Concomitant]
     Dates: start: 20011211
  3. MOLSITON [Concomitant]
     Dates: start: 20011211
  4. ASPIRIN [Concomitant]
     Dates: start: 20011211
  5. CYTOTEC [Concomitant]
     Dates: start: 20011211
  6. TOREM [Concomitant]
     Dates: start: 20020115
  7. FOLIN [Concomitant]
     Dates: start: 20020226
  8. ZYLORIC [Concomitant]
     Dates: start: 20031022
  9. COZAAR [Concomitant]
     Dates: start: 20050607

REACTIONS (1)
  - CELLULITIS [None]
